FAERS Safety Report 8079137-4 (Version None)
Quarter: 2012Q1

REPORT INFORMATION
  Report Type: 
  Country: None (occurrence: None)
  Receive Date: 20120128
  Receipt Date: 20110816
  Transmission Date: 20120608
  Serious: No
  Sender: FDA-Public Use
  Company Number: US-ABBOTT-11P-163-0848011-00

PATIENT
  Sex: Male
  Weight: 108.96 kg

DRUGS (3)
  1. LISINOPRIL [Concomitant]
     Indication: PRODUCT USED FOR UNKNOWN INDICATION
  2. HUMIRA [Suspect]
     Indication: PSORIATIC ARTHROPATHY
     Dates: start: 20110601
  3. VICODIN [Concomitant]
     Indication: PAIN
     Dosage: PRN

REACTIONS (1)
  - ARTHRALGIA [None]
